FAERS Safety Report 7562385-7 (Version None)
Quarter: 2011Q2

REPORT INFORMATION
  Report Type: 
  Country: None (occurrence: None)
  Receive Date: 20110614
  Receipt Date: 20110601
  Transmission Date: 20111010
  Serious: Yes (Death, Other)
  Sender: FDA-Public Use
  Company Number: 2011MA006676

PATIENT
  Age: 57 Year
  Sex: Male

DRUGS (9)
  1. COCAINE [Suspect]
     Dosage: 92 MG/ML;
  2. BENZOYLECGONINE [Concomitant]
  3. RISPERIDONE [Suspect]
  4. ETHANOL [Suspect]
     Dosage: 83 MG/DL;
  5. FLUOXETINE HCL [Concomitant]
  6. TRAZODONE HCL [Concomitant]
  7. FENTANYL [Concomitant]
  8. NORFENTANYL [Concomitant]
  9. FLUOXETINE [Concomitant]

REACTIONS (6)
  - UNRESPONSIVE TO STIMULI [None]
  - ACCIDENTAL DEATH [None]
  - TOXICITY TO VARIOUS AGENTS [None]
  - CARDIAC ARREST [None]
  - WRONG TECHNIQUE IN DRUG USAGE PROCESS [None]
  - ALCOHOL POISONING [None]
